FAERS Safety Report 13318813 (Version 4)
Quarter: 2017Q3

REPORT INFORMATION
  Report Type: Report from Study
  Country: None (occurrence: DE)
  Receive Date: 20170310
  Receipt Date: 20170712
  Transmission Date: 20171127
  Serious: Yes (Hospitalization)
  Sender: FDA-Public Use
  Company Number: DE-CLOVIS-2016-0338-0114

PATIENT
  Age: 68 Year
  Sex: Female
  Weight: 60 kg

DRUGS (11)
  1. AMLODIPINE [Concomitant]
     Active Substance: AMLODIPINE BESYLATE
  2. PANTOPRAZOLE [Concomitant]
     Active Substance: PANTOPRAZOLE
  3. CO-338 [Suspect]
     Active Substance: RUCAPARIB
     Route: 048
     Dates: start: 20160711
  4. BISPHOSPHONATES [Concomitant]
     Active Substance: UNSPECIFIED INGREDIENT
     Indication: OSTEOPOROSIS
     Dates: start: 20160115
  5. HCT [Concomitant]
     Active Substance: HYDROCHLOROTHIAZIDE
  6. DORZOLAMIDE [Concomitant]
     Active Substance: DORZOLAMIDE
  7. COLECALCIFEROL [Concomitant]
     Active Substance: CHOLECALCIFEROL
  8. CO-338 [Suspect]
     Active Substance: RUCAPARIB
     Indication: OVARIAN CANCER
     Route: 048
     Dates: start: 20160504
  9. RAMIPRIL. [Concomitant]
     Active Substance: RAMIPRIL
  10. NADROPARIN [Concomitant]
     Active Substance: NADROPARIN
  11. CO-338 [Suspect]
     Active Substance: RUCAPARIB
     Route: 048
     Dates: end: 20160629

REACTIONS (1)
  - Renal failure [Recovered/Resolved]

NARRATIVE: CASE EVENT DATE: 20160708
